FAERS Safety Report 6082754-4 (Version None)
Quarter: 2009Q1

REPORT INFORMATION
  Report Type: 
  Country: None (occurrence: None)
  Receive Date: 20090218
  Receipt Date: 20090207
  Transmission Date: 20090719
  Serious: Yes (Other)
  Sender: FDA-Public Use
  Company Number: US-JNJFOC-20090202884

PATIENT
  Age: 25 Year
  Sex: Female
  Weight: 67.59 kg

DRUGS (1)
  1. EXTRA STRENGTH TYLENOL [Suspect]
     Indication: HEADACHE

REACTIONS (5)
  - ABORTION SPONTANEOUS [None]
  - AMNIORRHOEA [None]
  - DRUG EXPOSURE DURING PREGNANCY [None]
  - INTENTIONAL OVERDOSE [None]
  - VAGINAL INFECTION [None]
